FAERS Safety Report 14603051 (Version 2)
Quarter: 2018Q1

REPORT INFORMATION
  Report Type: Spontaneous
  Country: CA (occurrence: CA)
  Receive Date: 20180306
  Receipt Date: 20180323
  Transmission Date: 20180509
  Serious: Yes (Hospitalization, Other)
  Sender: FDA-Public Use
  Company Number: CA-BEH-2018088513

PATIENT
  Age: 72 Year
  Sex: Male
  Weight: 61 kg

DRUGS (5)
  1. PRIVIGEN [Suspect]
     Active Substance: HUMAN IMMUNOGLOBULIN G
     Indication: HYPOGAMMAGLOBULINAEMIA
     Dosage: 25 G, Q3W
     Route: 042
  2. BENADRYL [Concomitant]
     Active Substance: DIPHENHYDRAMINE HYDROCHLORIDE
     Indication: PREMEDICATION
     Dosage: 25 MG, UNK
     Route: 042
     Dates: start: 20171106
  3. PRIVIGEN [Suspect]
     Active Substance: HUMAN IMMUNOGLOBULIN G
     Dosage: 200 ML, UNK, FRACTION 4/4
     Route: 042
     Dates: start: 20171106, end: 20171106
  4. PRIVIGEN [Suspect]
     Active Substance: HUMAN IMMUNOGLOBULIN G
     Dosage: UNK
     Route: 065
     Dates: start: 20120224, end: 20120224
  5. PRIVIGEN [Suspect]
     Active Substance: HUMAN IMMUNOGLOBULIN G
     Dosage: 50 ML, UNK, FRACTION 4/4
     Route: 042
     Dates: start: 20171106, end: 20171106

REACTIONS (9)
  - Tachypnoea [Recovered/Resolved]
  - Back pain [Recovered/Resolved]
  - Tachycardia [Recovered/Resolved]
  - Dyspnoea [Recovered/Resolved]
  - Pulmonary sepsis [Unknown]
  - Chills [Recovered/Resolved]
  - Febrile nonhaemolytic transfusion reaction [Recovered/Resolved]
  - Body temperature increased [Recovered/Resolved]
  - Cough [Unknown]

NARRATIVE: CASE EVENT DATE: 20171106
